FAERS Safety Report 24922069 (Version 1)
Quarter: 2025Q1

REPORT INFORMATION
  Report Type: Spontaneous
  Country: US (occurrence: US)
  Receive Date: 20250204
  Receipt Date: 20250204
  Transmission Date: 20250409
  Serious: Yes (Death, Life-Threatening, Hospitalization, Other)
  Sender: RELIANCE GENEMEDIX
  Company Number: US-Reliance-000439

PATIENT
  Age: 43 Year
  Sex: Male

DRUGS (2)
  1. CAPECITABINE [Suspect]
     Active Substance: CAPECITABINE
     Indication: Rectal adenocarcinoma
     Dosage: 1000 MG/M2, FOR 14 DAYS ON AND 7 DAYS OFF EVERY 21 DAYS
     Route: 048
  2. OXALIPLATIN [Concomitant]
     Active Substance: OXALIPLATIN
     Indication: Rectal adenocarcinoma
     Route: 042

REACTIONS (6)
  - Septic shock [Fatal]
  - Neutropenia [Unknown]
  - Thrombocytopenia [Unknown]
  - Diabetic ketoacidosis [Unknown]
  - Rash [Unknown]
  - Diarrhoea [Unknown]
